FAERS Safety Report 5268213-7 (Version None)
Quarter: 2007Q1

REPORT INFORMATION
  Report Type: 
  Country: None (occurrence: None)
  Receive Date: 20070314
  Receipt Date: 20070314
  Transmission Date: 20070707
  Serious: Yes (Hospitalization)
  Sender: FDA-Public Use
  Company Number: None

PATIENT
  Age: 50 Year
  Sex: Female
  Weight: 68.0396 kg

DRUGS (3)
  1. CCK -CHOLECYSTOKININ- [Suspect]
     Indication: GALLBLADDER DISORDER
     Dosage: ONCE IV
     Route: 042
     Dates: start: 20070307, end: 20070307
  2. CCK -CHOLECYSTOKININ- [Suspect]
     Indication: SCAN
     Dosage: ONCE IV
     Route: 042
     Dates: start: 20070307, end: 20070307
  3. TC-99M -TECHNETIUM- [Suspect]
     Indication: SCAN
     Dosage: ONCE IV
     Route: 042
     Dates: start: 20070307, end: 20070307

REACTIONS (8)
  - CHILLS [None]
  - CHOLECYSTECTOMY [None]
  - HEADACHE [None]
  - INCOHERENT [None]
  - LABORATORY TEST ABNORMAL [None]
  - NAUSEA [None]
  - POST PROCEDURAL COMPLICATION [None]
  - VOMITING [None]
